FAERS Safety Report 13260791 (Version 1)
Quarter: 2017Q1

REPORT INFORMATION
  Report Type: Spontaneous
  Country: DE (occurrence: DE)
  Receive Date: 20170222
  Receipt Date: 20170222
  Transmission Date: 20170428
  Serious: Yes (Hospitalization, Disabling)
  Sender: FDA-Public Use
  Company Number: DE-GILEAD-2017-0258529

PATIENT
  Age: 50 Year
  Sex: Male
  Weight: 80 kg

DRUGS (5)
  1. DESCOVY [Suspect]
     Active Substance: EMTRICITABINE\TENOFOVIR ALAFENAMIDE FUMARATE
     Indication: HIV INFECTION
     Dosage: UNK
     Route: 065
     Dates: start: 201607
  2. ISENTRESS [Concomitant]
     Active Substance: RALTEGRAVIR POTASSIUM
     Dosage: 400 MG, QD
     Dates: start: 201305
  3. ACICLOVIR [Concomitant]
     Active Substance: ACYCLOVIR
     Dosage: UNK
  4. PANTOPRAZOL [Concomitant]
     Active Substance: PANTOPRAZOLE SODIUM
     Dosage: 20 MG, UNK
     Dates: start: 20161108
  5. FLUNARIZIN CT [Concomitant]
     Dosage: 10 MG, QD

REACTIONS (2)
  - Tendon rupture [Unknown]
  - Tendon rupture [Unknown]

NARRATIVE: CASE EVENT DATE: 201610
